FAERS Safety Report 9338740 (Version 5)
Quarter: 2013Q4

REPORT INFORMATION
  Report Type: Spontaneous
  Country: BR (occurrence: BR)
  Receive Date: 20130610
  Receipt Date: 20131105
  Transmission Date: 20140711
  Serious: Yes (Hospitalization, Other)
  Sender: FDA-Public Use
  Company Number: BR-PFIZER INC-2013172266

PATIENT
  Age: 69 Year
  Sex: Male

DRUGS (2)
  1. SUTENT [Suspect]
     Indication: RENAL CELL CARCINOMA
     Dosage: 50 MG, CYCLIC (CYCLE 4X2)
     Route: 048
     Dates: start: 20130510, end: 20130531
  2. SUTENT [Suspect]
     Dosage: 37.5 MG, CYCLIC, CYCLE 4 PER 2
     Dates: start: 20130924, end: 20131004

REACTIONS (12)
  - Cardiac disorder [Not Recovered/Not Resolved]
  - Pyrexia [Recovered/Resolved]
  - Platelet count decreased [Recovering/Resolving]
  - Haematoma [Recovering/Resolving]
  - Haemorrhage [Recovering/Resolving]
  - Pulmonary haemorrhage [Recovered/Resolved]
  - Haemorrhoidal haemorrhage [Recovered/Resolved]
  - Anaemia [Recovered/Resolved]
  - Mouth haemorrhage [Recovered/Resolved]
  - Aphagia [Recovering/Resolving]
  - Gastrointestinal disorder [Recovering/Resolving]
  - Liver disorder [Recovering/Resolving]
